FAERS Safety Report 25488182 (Version 1)
Quarter: 2025Q2

REPORT INFORMATION
  Report Type: Report from Study
  Country: KR (occurrence: KR)
  Receive Date: 20250627
  Receipt Date: 20250627
  Transmission Date: 20250717
  Serious: Yes (Other)
  Sender: EMD SERONO INC
  Company Number: KR-MS202082_0010_018-0001-3

PATIENT
  Age: 54 Year
  Sex: Male
  Weight: 85 kg

DRUGS (12)
  1. BAVENCIO [Suspect]
     Active Substance: AVELUMAB
     Indication: Product used for unknown indication
  2. EDARBI [Concomitant]
     Active Substance: AZILSARTAN KAMEDOXOMIL
     Indication: Product used for unknown indication
     Dosage: 40MG/QD/PO
     Dates: start: 2022
  3. FEROBA YOU SR [Concomitant]
     Indication: Product used for unknown indication
     Dosage: 1 TABLET
     Dates: start: 20240806
  4. TYLENOL [Concomitant]
     Active Substance: ACETAMINOPHEN
     Indication: Product used for unknown indication
     Dosage: 2 TABLET, 8HOURS ER TAB 650MG
     Dates: start: 20240806
  5. HEPAMERZ [ADENOSINE TRIPHOSPHATE, DISODIUM SALT;CITIOLONE;CYANOCOBALAM [Concomitant]
     Indication: Product used for unknown indication
     Dosage: 500 MG/5 ML
     Dates: start: 20241010
  6. ACETYLCYSTEINE [Concomitant]
     Active Substance: ACETYLCYSTEINE
     Indication: Product used for unknown indication
     Dosage: 100MG/ML3ML/A
     Dates: start: 20241010
  7. TAMIPOOL [ASCORBIC ACID;BIOTIN;CYANOCOBALAMIN;DEXPANTHENOL;ERGOCALCIFE [Concomitant]
     Indication: Product used for unknown indication
     Dosage: 1 OTHER VIAL
     Dates: start: 20241010
  8. ULTRACET [Concomitant]
     Active Substance: ACETAMINOPHEN\TRAMADOL HYDROCHLORIDE
     Indication: Product used for unknown indication
     Dates: start: 20241011
  9. DAEWOONGBIO URSODEOXYCHOLIC ACID [Concomitant]
     Indication: Product used for unknown indication
     Dates: start: 20241011
  10. LIDOCAINE HYDROCHLORIDE [Concomitant]
     Active Substance: LIDOCAINE HYDROCHLORIDE
     Indication: Product used for unknown indication
     Dosage: 2 PERCENT INJECTION 20ML
     Dates: start: 20241011
  11. MEPERIDINE HYDROCHLORIDE [Concomitant]
     Active Substance: MEPERIDINE HYDROCHLORIDE
     Indication: Product used for unknown indication
     Dosage: 25MG/0.5ML
     Dates: start: 20241010
  12. TYLICOL [Concomitant]
     Indication: Product used for unknown indication
     Dates: start: 20241011

REACTIONS (1)
  - Acute kidney injury [Recovering/Resolving]

NARRATIVE: CASE EVENT DATE: 20241021
